FAERS Safety Report 14570031 (Version 1)
Quarter: 2018Q1

REPORT INFORMATION
  Report Type: Spontaneous
  Country: US (occurrence: US)
  Receive Date: 20180225
  Receipt Date: 20180225
  Transmission Date: 20180509
  Serious: Yes (Hospitalization)
  Sender: FDA-Public Use
  Company Number: US-ABBVIE-18K-163-2265371-00

PATIENT
  Sex: Male
  Weight: 99.88 kg

DRUGS (2)
  1. ANDROGEL [Suspect]
     Active Substance: TESTOSTERONE
     Indication: HYPOGONADISM
     Dosage: 1 PUMP DAILY
     Route: 061
     Dates: end: 201604
  2. ATORVASTIN [Concomitant]
     Active Substance: ATORVASTATIN
     Indication: BLOOD CHOLESTEROL INCREASED

REACTIONS (11)
  - Intervertebral disc protrusion [Recovered/Resolved]
  - Spinal fusion surgery [Recovered/Resolved]
  - Intestinal obstruction [Recovered/Resolved]
  - Back pain [Recovered/Resolved]
  - Intestinal operation [Recovered/Resolved]
  - Rotator cuff syndrome [Recovered/Resolved]
  - Back pain [Recovered/Resolved]
  - Pulmonary embolism [Recovered/Resolved]
  - Pulmonary embolism [Recovered/Resolved]
  - Tendon rupture [Recovered/Resolved]
  - Musculoskeletal pain [Recovered/Resolved]

NARRATIVE: CASE EVENT DATE: 2014
